FAERS Safety Report 9431912 (Version 1)
Quarter: 2013Q3

REPORT INFORMATION
  Report Type: Spontaneous
  Country: AU (occurrence: AU)
  Receive Date: 20130731
  Receipt Date: 20130731
  Transmission Date: 20140515
  Serious: Yes (Other)
  Sender: FDA-Public Use
  Company Number: PHHY2013AU080474

PATIENT
  Sex: Male

DRUGS (2)
  1. TEGRETOL CR [Suspect]
     Dosage: 2000 MG, PER DAY (IN 3 DOSES)
     Route: 048
  2. DILANTIN [Suspect]
     Dosage: UNK UKN, UNK

REACTIONS (3)
  - Scratch [Not Recovered/Not Resolved]
  - Rash [Unknown]
  - Wrong technique in drug usage process [Unknown]
